FAERS Safety Report 12685127 (Version 1)
Quarter: 2016Q3

REPORT INFORMATION
  Report Type: Spontaneous
  Country: US (occurrence: US)
  Receive Date: 20160825
  Receipt Date: 20160825
  Transmission Date: 20161109
  Serious: Yes (Hospitalization)
  Sender: FDA-Public Use
  Company Number: US-BAUSCH-BL-2016-019824

PATIENT
  Age: 92 Year
  Sex: Male
  Weight: 49.94 kg

DRUGS (6)
  1. PRESERVISION AREDS 2 FORMULA SOFT GELS [Suspect]
     Active Substance: MINERALS\VITAMINS
     Indication: MACULAR DEGENERATION
     Route: 048
     Dates: start: 20160801
  2. LATANOPROST. [Concomitant]
     Active Substance: LATANOPROST
     Indication: GLAUCOMA
     Route: 047
     Dates: start: 201606
  3. FINASTERIDE. [Concomitant]
     Active Substance: FINASTERIDE
     Indication: PROSTATOMEGALY
     Route: 048
  4. PRESERVISION AREDS TABLETS [Suspect]
     Active Substance: MINERALS\VITAMINS
     Indication: MACULAR DEGENERATION
     Route: 048
     Dates: end: 20160801
  5. FERROUS SULFATE. [Concomitant]
     Active Substance: FERROUS SULFATE
     Indication: SUPPLEMENTATION THERAPY
     Route: 048
  6. TIMOLOL MALEATE. [Suspect]
     Active Substance: TIMOLOL MALEATE
     Indication: GLAUCOMA
     Route: 047

REACTIONS (10)
  - Drug dose omission [Unknown]
  - Joint swelling [Recovering/Resolving]
  - Walking aid user [Unknown]
  - Wrong technique in product usage process [Unknown]
  - Blood sodium decreased [Recovered/Resolved]
  - Product difficult to swallow [Unknown]
  - Foreign body [Unknown]
  - Peripheral swelling [Recovering/Resolving]
  - Intraocular pressure increased [Recovering/Resolving]
  - Fall [Recovered/Resolved]

NARRATIVE: CASE EVENT DATE: 20160522
